FAERS Safety Report 8013233-2 (Version None)
Quarter: 2011Q4

REPORT INFORMATION
  Report Type: 
  Country: None (occurrence: None)
  Receive Date: 20111229
  Receipt Date: 20111229
  Transmission Date: 20120403
  Serious: Yes (Hospitalization)
  Sender: FDA-Public Use
  Company Number: None

PATIENT
  Age: 74 Year
  Sex: Male
  Weight: 86.6 kg

DRUGS (8)
  1. AVODART [Concomitant]
     Route: 048
  2. AMARYL [Concomitant]
     Route: 048
  3. ALLOPURINOL [Concomitant]
     Route: 048
  4. JANUVIA [Concomitant]
     Route: 048
  5. DILTIAZEM CD [Concomitant]
     Route: 048
  6. FUROSEMIDE [Concomitant]
     Route: 048
  7. XARELTO [Suspect]
     Indication: ATRIAL FIBRILLATION
     Dosage: 20MG
     Route: 048
     Dates: start: 20111216, end: 20111218
  8. AMIKACIN [Concomitant]
     Route: 042

REACTIONS (4)
  - HAEMATURIA [None]
  - RENAL FAILURE ACUTE [None]
  - HYPOGLYCAEMIA [None]
  - HYPERKALAEMIA [None]
